FAERS Safety Report 18478954 (Version 1)
Quarter: 2020Q4

REPORT INFORMATION
  Report Type: Report from Study
  Country: HR (occurrence: HR)
  Receive Date: 20201109
  Receipt Date: 20201109
  Transmission Date: 20210114
  Serious: Yes (Other)
  Sender: FDA-Public Use
  Company Number: HR-B.I. PHARMACEUTICALS,INC./RIDGEFIELD-2020-BI-058598

PATIENT
  Age: 81 Year
  Sex: Male

DRUGS (7)
  1. APIXABAN [Concomitant]
     Active Substance: APIXABAN
     Dates: start: 20200909, end: 20201012
  2. PANTOPRAZOLE [Concomitant]
     Active Substance: PANTOPRAZOLE
     Indication: EROSIVE OESOPHAGITIS
  3. PRADAXA [Suspect]
     Active Substance: DABIGATRAN ETEXILATE MESYLATE
     Indication: ATRIAL FIBRILLATION
     Dosage: 220MG
     Dates: end: 20200909
  4. ROPINIROLE. [Concomitant]
     Active Substance: ROPINIROLE
     Indication: PARKINSON^S DISEASE
     Dosage: ROPINIROLE 8 MG QD
  5. NINTEDANIB [Concomitant]
     Active Substance: NINTEDANIB
     Indication: PULMONARY HYPERTENSION
     Route: 065
  6. BISOPROLOL [Concomitant]
     Active Substance: BISOPROLOL
     Indication: ATRIAL FIBRILLATION
     Dosage: 2.5 MG QD
     Route: 065
  7. LEVODOPA [Concomitant]
     Active Substance: LEVODOPA
     Indication: PARKINSON^S DISEASE
     Dosage: LEVEDOPA 125 MG TID
     Route: 065

REACTIONS (6)
  - Gastrooesophageal reflux disease [Unknown]
  - Acute kidney injury [Unknown]
  - Melaena [Unknown]
  - Melaena [Recovered/Resolved]
  - Drug interaction [Recovered/Resolved]
  - Haematochezia [Recovered/Resolved]

NARRATIVE: CASE EVENT DATE: 20200901
